FAERS Safety Report 4691318-6 (Version None)
Quarter: 2005Q2

REPORT INFORMATION
  Report Type: 
  Country: None (occurrence: None)
  Receive Date: 20050615
  Receipt Date: 20050610
  Transmission Date: 20051028
  Serious: Yes (Life-Threatening, Hospitalization)
  Sender: FDA-Public Use
  Company Number: US-MERCK-0506USA01797

PATIENT
  Age: 60 Year
  Sex: Female

DRUGS (3)
  1. SINGULAIR [Suspect]
     Indication: ASTHMA
     Route: 048
     Dates: start: 20040101, end: 20040101
  2. [THERAPY UNSPECIFIED] [Concomitant]
     Indication: ASTHMA
     Route: 055
  3. [THERAPY UNSPECIFIED] [Concomitant]
     Route: 065

REACTIONS (2)
  - LOWER RESPIRATORY TRACT INFECTION BACTERIAL [None]
  - SINUSITIS [None]
